FAERS Safety Report 10709486 (Version 1)
Quarter: 2015Q1

REPORT INFORMATION
  Report Type: Spontaneous
  Country: US (occurrence: None)
  Receive Date: 20150113
  Receipt Date: 20150113
  Transmission Date: 20150721
  Serious: Yes (Other)
  Sender: FDA-Public Use
  Company Number: None

PATIENT
  Age: 71 Year
  Sex: Male
  Weight: 129.28 kg

DRUGS (1)
  1. DOXYCYCLINE. [Suspect]
     Active Substance: DOXYCYCLINE
     Indication: BRONCHIAL DISORDER
     Dosage: 1 PILL 2 X DAY
     Route: 048

REACTIONS (8)
  - Hyperhidrosis [None]
  - Fatigue [None]
  - Hostility [None]
  - Dizziness [None]
  - Confusional state [None]
  - Disorientation [None]
  - Anger [None]
  - Nausea [None]

NARRATIVE: CASE EVENT DATE: 20150112
